FAERS Safety Report 14897234 (Version 1)
Quarter: 2018Q2

REPORT INFORMATION
  Report Type: Spontaneous
  Country: US (occurrence: US)
  Receive Date: 20180515
  Receipt Date: 20180515
  Transmission Date: 20180711
  Serious: No
  Sender: FDA-Public Use
  Company Number: US-GLAXOSMITHKLINE-US2018081151

PATIENT
  Age: 31 Year
  Sex: Male

DRUGS (1)
  1. ABREVA [Suspect]
     Active Substance: DOCOSANOL
     Indication: BLISTER
     Dosage: STOPPED AFTER FEW DAYS LIKE 3-4DAYS
     Dates: start: 20180425

REACTIONS (1)
  - Incorrect drug administration duration [Recovering/Resolving]
